FAERS Safety Report 11444697 (Version 1)
Quarter: 2015Q3

REPORT INFORMATION
  Report Type: Not Available
  Country: US (occurrence: US)
  Receive Date: 20150902
  Receipt Date: 20150902
  Transmission Date: 20151125
  Serious: No
  Sender: FDA-Public Use
  Company Number: US-LUPIN PHARMACEUTICALS INC.-E2B_00003873

PATIENT
  Age: 63 Year
  Sex: Male
  Weight: 124.85 kg

DRUGS (1)
  1. MELOXICAM TABLETS USP 15MG [Suspect]
     Active Substance: MELOXICAM
     Indication: NEURALGIA
     Dates: start: 20150520, end: 20150628

REACTIONS (5)
  - Myalgia [Not Recovered/Not Resolved]
  - Swelling face [Not Recovered/Not Resolved]
  - Muscle spasms [Not Recovered/Not Resolved]
  - Faeces discoloured [Not Recovered/Not Resolved]
  - Diarrhoea [Not Recovered/Not Resolved]

NARRATIVE: CASE EVENT DATE: 20150701
